FAERS Safety Report 25578572 (Version 1)
Quarter: 2025Q3

REPORT INFORMATION
  Report Type: Spontaneous
  Country: EU (occurrence: EU)
  Receive Date: 20250718
  Receipt Date: 20250718
  Transmission Date: 20251020
  Serious: Yes (Other)
  Sender: MYLAN
  Company Number: None

PATIENT
  Age: 38 Year
  Sex: Male

DRUGS (4)
  1. VIAGRA [Suspect]
     Active Substance: SILDENAFIL CITRATE
     Indication: Product used for unknown indication
  2. VIAGRA [Suspect]
     Active Substance: SILDENAFIL CITRATE
     Route: 065
  3. VIAGRA [Suspect]
     Active Substance: SILDENAFIL CITRATE
     Route: 065
  4. VIAGRA [Suspect]
     Active Substance: SILDENAFIL CITRATE

REACTIONS (6)
  - Behaviour disorder [Recovered/Resolved]
  - Disinhibition [Recovered/Resolved]
  - Agitation [Recovered/Resolved]
  - Delirium [Recovered/Resolved]
  - Tachycardia [Recovered/Resolved]
  - Drug abuse [Not Recovered/Not Resolved]

NARRATIVE: CASE EVENT DATE: 20250530
